FAERS Safety Report 8585857-5 (Version None)
Quarter: 2012Q3

REPORT INFORMATION
  Report Type: 
  Country: None (occurrence: None)
  Receive Date: 20120810
  Receipt Date: 20120803
  Transmission Date: 20120928
  Serious: Yes (Other)
  Sender: FDA-Public Use
  Company Number: DE-PFIZER INC-2012191982

PATIENT
  Age: 57 Year
  Sex: Female

DRUGS (2)
  1. AZULFIDINE [Suspect]
     Dosage: 2 TABLETS TWICE DAILY
  2. AZULFIDINE [Suspect]
     Dosage: 2 TABLETS THREE TIMES DAILY

REACTIONS (1)
  - RAYNAUD'S PHENOMENON [None]
